FAERS Safety Report 24581719 (Version 4)
Quarter: 2024Q4

REPORT INFORMATION
  Report Type: Spontaneous
  Country: US (occurrence: US)
  Receive Date: 20241105
  Receipt Date: 20241223
  Transmission Date: 20250114
  Serious: Yes (Other)
  Sender: PFIZER
  Company Number: US-PFIZER INC-202400270795

PATIENT
  Age: 33 Year
  Sex: Male

DRUGS (1)
  1. VELSIPITY [Suspect]
     Active Substance: ETRASIMOD ARGININE
     Indication: Colitis ulcerative
     Dosage: 2 MG (1 TABLET), 1X/DAY
     Route: 048

REACTIONS (3)
  - Type 2 diabetes mellitus [Unknown]
  - Diabetic eye disease [Unknown]
  - Diarrhoea [Unknown]
